FAERS Safety Report 4775564-9 (Version None)
Quarter: 2005Q3

REPORT INFORMATION
  Report Type: 
  Country: None (occurrence: None)
  Receive Date: 20050922
  Receipt Date: 20050914
  Transmission Date: 20060218
  Serious: Yes (Death)
  Sender: FDA-Public Use
  Company Number: 200512671JP

PATIENT
  Age: 67 Year
  Sex: Female

DRUGS (2)
  1. LASIX [Suspect]
     Indication: PLEURAL EFFUSION
  2. ACETAZOLAMIDE [Concomitant]
     Indication: PLEURAL EFFUSION

REACTIONS (2)
  - CARDIAC FAILURE [None]
  - CHRONIC RESPIRATORY FAILURE [None]
